FAERS Safety Report 10397976 (Version 2)
Quarter: 2015Q2

REPORT INFORMATION
  Report Type: Report from Study
  Country: US (occurrence: US)
  Receive Date: 20140821
  Receipt Date: 20150626
  Transmission Date: 20150821
  Serious: Yes (Hospitalization)
  Sender: FDA-Public Use
  Company Number: US-UCBSA-2014009089

PATIENT
  Age: 0 Year
  Weight: 3.6 kg

DRUGS (6)
  1. VITAMIN D3 [Concomitant]
     Active Substance: CHOLECALCIFEROL
     Dosage: 4000 IU, ONCE DAILY (QD)
     Route: 064
     Dates: end: 20131020
  2. PRENATAL VITAMINS [Concomitant]
     Active Substance: VITAMINS
     Dosage: 1 DF, ONCE DAILY (QD)
     Route: 064
     Dates: start: 20131021, end: 20140626
  3. MEDROL [Concomitant]
     Active Substance: METHYLPREDNISOLONE
     Indication: CROHN^S DISEASE
     Dosage: 84 MG, 2X/DAY (BID)
     Route: 064
     Dates: start: 20140301, end: 20140401
  4. CAFFEINE. [Concomitant]
     Active Substance: CAFFEINE
     Dosage: 0.5SERVIN MONTHLY (QM)
     Route: 064
     Dates: end: 20140626
  5. TUMS [Concomitant]
     Active Substance: CALCIUM CARBONATE
     Indication: DYSPEPSIA
     Dosage: 1 PILL AS NEEDED (PRN)
     Route: 064
     Dates: start: 20140501, end: 20140626
  6. CERTOLIZUMAB PEGOL RA [Suspect]
     Active Substance: CERTOLIZUMAB PEGOL
     Indication: CROHN^S DISEASE
     Dosage: 200 MG, EV 2 WEEKS(QOW)
     Route: 064
     Dates: start: 2013, end: 20130626

REACTIONS (4)
  - Feeding disorder [Unknown]
  - Jaundice neonatal [Unknown]
  - Dehydration [Unknown]
  - Foetal exposure during pregnancy [Unknown]

NARRATIVE: CASE EVENT DATE: 2013
